FAERS Safety Report 5763594-X (Version None)
Quarter: 2008Q2

REPORT INFORMATION
  Report Type: 
  Country: None (occurrence: None)
  Receive Date: 20080610
  Receipt Date: 20080529
  Transmission Date: 20081010
  Serious: Yes (Hospitalization, Other)
  Sender: FDA-Public Use
  Company Number: PHHY2008BR09385

PATIENT
  Sex: Male
  Weight: 70 kg

DRUGS (4)
  1. CODATEN [Suspect]
     Indication: INTERVERTEBRAL DISC DISORDER
     Dosage: UNK
     Route: 048
     Dates: start: 20071201
  2. RENITEC [Concomitant]
     Indication: HYPERTENSION
     Dosage: UNK
     Route: 048
  3. CITONEURIN [Concomitant]
     Indication: HERNIA
     Dosage: UNK
     Route: 048
  4. LACTULOSE [Concomitant]

REACTIONS (6)
  - AMNESIA [None]
  - AREFLEXIA [None]
  - CONSTIPATION [None]
  - ENEMA ADMINISTRATION [None]
  - MOTOR DYSFUNCTION [None]
  - NAUSEA [None]
